FAERS Safety Report 5201930-3 (Version None)
Quarter: 2007Q1

REPORT INFORMATION
  Report Type: 
  Country: None (occurrence: None)
  Receive Date: 20070104
  Receipt Date: 20061221
  Transmission Date: 20070707
  Serious: Yes (Hospitalization)
  Sender: FDA-Public Use
  Company Number: 2006-152220-NL

PATIENT
  Age: 67 Year
  Sex: Female

DRUGS (3)
  1. MIRTAZAPINE [Suspect]
     Indication: DEPRESSION
     Dosage: 15 MG QD, ORAL
     Route: 048
  2. LEVODOPA [Concomitant]
  3. CITALOPRAM HYDROBROMIDE [Concomitant]

REACTIONS (7)
  - BRADYKINESIA [None]
  - HYPONATRAEMIA [None]
  - INAPPROPRIATE ANTIDIURETIC HORMONE SECRETION [None]
  - MASKED FACIES [None]
  - NAUSEA [None]
  - TREMOR [None]
  - VOMITING [None]
